FAERS Safety Report 15747865 (Version 2)
Quarter: 2018Q4

REPORT INFORMATION
  Report Type: Report from Study
  Country: US (occurrence: US)
  Receive Date: 20181221
  Receipt Date: 20181225
  Transmission Date: 20190205
  Serious: Yes (Death, Hospitalization, Other)
  Sender: FDA-Public Use
  Company Number: US-BIOGEN-2018BI00672939

PATIENT
  Age: 57 Year
  Sex: Male

DRUGS (2)
  1. TYSABRI [Suspect]
     Active Substance: NATALIZUMAB
     Indication: MULTIPLE SCLEROSIS
     Route: 042
     Dates: start: 20180427, end: 20181026
  2. TYSABRI [Suspect]
     Active Substance: NATALIZUMAB
     Route: 042
     Dates: end: 201811

REACTIONS (5)
  - Cerebrovascular accident [Fatal]
  - Staphylococcal sepsis [Unknown]
  - Embolism [Fatal]
  - Urinary tract disorder [Unknown]
  - Urosepsis [Unknown]

NARRATIVE: CASE EVENT DATE: 201811
